FAERS Safety Report 5107935-5 (Version None)
Quarter: 2006Q3

REPORT INFORMATION
  Report Type: 
  Country: None (occurrence: None)
  Receive Date: 20060919
  Receipt Date: 20060630
  Transmission Date: 20061208
  Serious: Yes (Other)
  Sender: FDA-Public Use
  Company Number: PHBS2006BE10000

PATIENT
  Age: 61 Year
  Sex: Female

DRUGS (6)
  1. ZOMETA [Suspect]
     Indication: BREAST CANCER
     Dosage: 4 MG, QMO
     Route: 042
     Dates: start: 20030101, end: 20060101
  2. CISPLATIN [Concomitant]
     Indication: BREAST CANCER
     Dates: start: 20050802, end: 20060201
  3. CORTICOSTEROID NOS [Concomitant]
     Dosage: SHORT-TERM
  4. EPIRUBICIN [Concomitant]
     Indication: BREAST CANCER
  5. CYCLOPHOSPHAMIDE [Concomitant]
     Indication: BREAST CANCER
  6. RADIOTHERAPY [Concomitant]
     Indication: METASTASES TO BONE

REACTIONS (7)
  - ABSCESS [None]
  - BONE LESION [None]
  - MALIGNANT NEOPLASM PROGRESSION [None]
  - MANDIBULECTOMY [None]
  - METASTASES TO CENTRAL NERVOUS SYSTEM [None]
  - OSTEONECROSIS [None]
  - PROSTHESIS IMPLANTATION [None]
